FAERS Safety Report 24239202 (Version 1)
Quarter: 2024Q3

REPORT INFORMATION
  Report Type: Report from Study
  Country: DE (occurrence: DE)
  Receive Date: 20240822
  Receipt Date: 20240822
  Transmission Date: 20241016
  Serious: Yes (Death)
  Sender: BAUSCH AND LOMB
  Company Number: DE-002147023-NVSC2024DE163209

PATIENT
  Age: 17 Year
  Sex: Male

DRUGS (4)
  1. DICLOFENAC [Suspect]
     Active Substance: DICLOFENAC
     Indication: Suicide attempt
     Route: 065
  2. LOPERAMIDE [Suspect]
     Active Substance: LOPERAMIDE
     Indication: Suicide attempt
     Route: 065
  3. TRAMADOL [Suspect]
     Active Substance: TRAMADOL\TRAMADOL HYDROCHLORIDE
     Indication: Suicide attempt
     Route: 065
  4. RANITIDINE [Suspect]
     Active Substance: RANITIDINE
     Indication: Suicide attempt
     Route: 065

REACTIONS (4)
  - Intentional overdose [Fatal]
  - Completed suicide [Fatal]
  - Toxicity to various agents [Fatal]
  - Product use in unapproved indication [Unknown]
